FAERS Safety Report 24382311 (Version 1)
Quarter: 2024Q4

REPORT INFORMATION
  Report Type: Spontaneous
  Country: US (occurrence: US)
  Receive Date: 20241001
  Receipt Date: 20241001
  Transmission Date: 20250115
  Serious: Yes (Life-Threatening, Other)
  Sender: HIKMA
  Company Number: US-HIKMA PHARMACEUTICALS USA INC.-US-H14001-24-08751

PATIENT
  Age: 36 Year
  Sex: Male

DRUGS (5)
  1. DEXAMETHASONE [Suspect]
     Active Substance: DEXAMETHASONE
     Indication: Hepatic failure
     Dosage: UNKNOWN
     Route: 065
  2. DEXAMETHASONE [Suspect]
     Active Substance: DEXAMETHASONE
     Indication: Cytopenia
  3. RUXOLITINIB [Suspect]
     Active Substance: RUXOLITINIB
     Dosage: 10 MILLIGRAM, BID
     Route: 048
     Dates: start: 20240822, end: 20240826
  4. RUXOLITINIB [Suspect]
     Active Substance: RUXOLITINIB
     Indication: Immune system disorder
     Dosage: 5 MILLIGRAM, BID
     Route: 048
     Dates: start: 20240817, end: 20240822
  5. POSACONAZOLE [Concomitant]
     Active Substance: POSACONAZOLE
     Indication: Product used for unknown indication
     Dosage: UNK
     Route: 065

REACTIONS (10)
  - Cryptosporidiosis infection [Recovered/Resolved]
  - Condition aggravated [Unknown]
  - Thrombocytopenia [Recovering/Resolving]
  - Systemic inflammatory response syndrome [Recovering/Resolving]
  - Gastrointestinal haemorrhage [Not Recovered/Not Resolved]
  - Sepsis [Unknown]
  - Ascites [Unknown]
  - Haemorrhoids [Unknown]
  - Erosive oesophagitis [Unknown]
  - Off label use [Unknown]

NARRATIVE: CASE EVENT DATE: 20240822
